FAERS Safety Report 12970865 (Version 5)
Quarter: 2017Q2

REPORT INFORMATION
  Report Type: Spontaneous
  Country: US (occurrence: US)
  Receive Date: 20161123
  Receipt Date: 20170608
  Transmission Date: 20170830
  Serious: Yes (Hospitalization, Other)
  Sender: FDA-Public Use
  Company Number: US-ALLERGAN-1671007US

PATIENT
  Age: 75 Year
  Sex: Male
  Weight: 64.4 kg

DRUGS (15)
  1. COMBIGAN [Suspect]
     Active Substance: BRIMONIDINE TARTRATE\TIMOLOL MALEATE
     Indication: PRODUCT USED FOR UNKNOWN INDICATION
     Dosage: UNK
     Route: 047
  2. DUREZOL [Suspect]
     Active Substance: DIFLUPREDNATE
     Indication: PRODUCT USED FOR UNKNOWN INDICATION
     Dosage: UNK, QD
     Route: 065
     Dates: start: 2016
  3. OFLOXACIN, 0.3% [Suspect]
     Active Substance: OFLOXACIN
     Indication: PRODUCT USED FOR UNKNOWN INDICATION
     Dosage: UNK UNK, UNKNOWN
     Route: 047
     Dates: start: 2015
  4. HYGROTON [Concomitant]
     Active Substance: CHLORTHALIDONE
     Indication: BLOOD PRESSURE MEASUREMENT
     Dosage: 12 MG, UNK
     Dates: start: 2015
  5. DORZOLAMIDE [Suspect]
     Active Substance: DORZOLAMIDE
     Indication: PRODUCT USED FOR UNKNOWN INDICATION
     Dosage: UNK, TID
     Route: 065
     Dates: start: 2008
  6. LATANOPROST. [Suspect]
     Active Substance: LATANOPROST
     Indication: PRODUCT USED FOR UNKNOWN INDICATION
     Dosage: 2 GTT, QHS
     Route: 047
     Dates: start: 2015
  7. DUREZOL [Suspect]
     Active Substance: DIFLUPREDNATE
     Dosage: UNK, TID
     Route: 065
     Dates: start: 2016, end: 2016
  8. DUREZOL [Suspect]
     Active Substance: DIFLUPREDNATE
     Dosage: UNK, QID
     Route: 065
     Dates: start: 2016, end: 2016
  9. DUREZOL [Suspect]
     Active Substance: DIFLUPREDNATE
     Dosage: UNK UNK, 5 TIMES PER DAY
     Route: 065
     Dates: start: 2016, end: 2016
  10. ATENOLOL. [Concomitant]
     Active Substance: ATENOLOL
     Indication: BLOOD PRESSURE MEASUREMENT
     Dosage: 25 MG, UNK
     Dates: start: 1987
  11. LUMIGAN [Suspect]
     Active Substance: BIMATOPROST
     Indication: GLAUCOMA
     Dosage: 4 GTT, BID
     Route: 047
     Dates: start: 2008, end: 2016
  12. FLOMAX [Concomitant]
     Active Substance: TAMSULOSIN HYDROCHLORIDE
     Indication: PROSTATIC DISORDER
     Dosage: 4 MG, UNK
     Dates: start: 2008
  13. DUREZOL [Suspect]
     Active Substance: DIFLUPREDNATE
     Dosage: UNK, BID
     Route: 065
     Dates: start: 2016, end: 2016
  14. LISINOPRIL. [Concomitant]
     Active Substance: LISINOPRIL
     Indication: BLOOD PRESSURE MEASUREMENT
     Dosage: 10 MG, QD
  15. FINASTERIDE. [Concomitant]
     Active Substance: FINASTERIDE
     Indication: PROSTATIC DISORDER

REACTIONS (6)
  - Off label use [Unknown]
  - Drug ineffective [Unknown]
  - Intraocular pressure increased [Recovering/Resolving]
  - Visual impairment [Recovered/Resolved]
  - Blindness unilateral [Unknown]
  - Inappropriate schedule of drug administration [Unknown]
